FAERS Safety Report 5299887-2 (Version None)
Quarter: 2007Q2

REPORT INFORMATION
  Report Type: 
  Country: None (occurrence: None)
  Receive Date: 20070410
  Receipt Date: 20070330
  Transmission Date: 20071010
  Serious: No
  Sender: FDA-Public Use
  Company Number: D0052861A

PATIENT
  Sex: 0

DRUGS (2)
  1. ARIXTRA [Suspect]
     Indication: THROMBOSIS PROPHYLAXIS
     Dosage: UNK / UNKNOWN / SUBCUTANEOUS
     Route: 058
  2. INDOMETHACIN [Suspect]

REACTIONS (3)
  - DRUG INTERACTION [None]
  - HAEMATOMA [None]
  - HAEMORRHAGE [None]
